FAERS Safety Report 18915693 (Version 1)
Quarter: 2021Q1

REPORT INFORMATION
  Report Type: Spontaneous
  Country: CR (occurrence: CR)
  Receive Date: 20210219
  Receipt Date: 20210219
  Transmission Date: 20210420
  Serious: Yes (Hospitalization)
  Sender: FDA-Public Use
  Company Number: CR-BAYER-2021-062453

PATIENT
  Age: 50 Year
  Sex: Female

DRUGS (2)
  1. QLAIRA [Suspect]
     Active Substance: DIENOGEST\ESTRADIOL VALERATE
     Indication: MENSTRUATION IRREGULAR
  2. QLAIRA [Suspect]
     Active Substance: DIENOGEST\ESTRADIOL VALERATE
     Indication: UTERINE LEIOMYOMA
     Dosage: UNK
     Route: 048
     Dates: start: 202010

REACTIONS (7)
  - Adnexa uteri pain [None]
  - Endometrial disorder [None]
  - Product use in unapproved indication [None]
  - Product dose omission in error [None]
  - Off label use [None]
  - Abnormal withdrawal bleeding [None]
  - Product dose omission in error [None]

NARRATIVE: CASE EVENT DATE: 202010
